FAERS Safety Report 4746519-5 (Version None)
Quarter: 2005Q3

REPORT INFORMATION
  Report Type: 
  Country: None (occurrence: None)
  Receive Date: 20050816
  Receipt Date: 20050816
  Transmission Date: 20060218
  Serious: Yes (Life-Threatening)
  Sender: FDA-Public Use
  Company Number: None

PATIENT
  Age: 6 Year
  Sex: Female
  Weight: 18.5 kg

DRUGS (5)
  1. VINCRISTINE [Suspect]
     Indication: ASTROCYTOMA
     Dosage: 1.2 MG IV
     Route: 042
     Dates: start: 20050720
  2. VINCRISTINE [Suspect]
     Indication: BLINDNESS
     Dosage: 1.2 MG IV
     Route: 042
     Dates: start: 20050720
  3. THIOGUANINE [Suspect]
  4. CCNU [Suspect]
  5. PROCARBAZINE [Suspect]

REACTIONS (4)
  - FALL [None]
  - MOVEMENT DISORDER [None]
  - SPEECH DISORDER [None]
  - TRANSIENT ISCHAEMIC ATTACK [None]
